FAERS Safety Report 7309491-X (Version None)
Quarter: 2011Q1

REPORT INFORMATION
  Report Type: 
  Country: None (occurrence: None)
  Receive Date: 20110223
  Receipt Date: 20110217
  Transmission Date: 20110831
  Serious: Yes (Hospitalization)
  Sender: FDA-Public Use
  Company Number: PT-GILEAD-2011-0036594

PATIENT
  Sex: Male
  Weight: 62 kg

DRUGS (4)
  1. BUPRENORPHINE HCL [Concomitant]
     Indication: DRUG DEPENDENCE
     Route: 060
     Dates: start: 20010101
  2. TRUVADA [Suspect]
     Route: 048
  3. NEVIRAPINE [Concomitant]
     Indication: HIV INFECTION
     Route: 048
     Dates: start: 20080601
  4. TRUVADA [Suspect]
     Indication: HIV INFECTION
     Route: 048
     Dates: start: 20080601

REACTIONS (2)
  - NEPHROTIC SYNDROME [None]
  - RENAL AMYLOIDOSIS [None]
